FAERS Safety Report 4715170-5 (Version None)
Quarter: 2005Q3

REPORT INFORMATION
  Report Type: 
  Country: None (occurrence: None)
  Receive Date: 20050715
  Receipt Date: 20050708
  Transmission Date: 20060218
  Serious: Yes (Hospitalization)
  Sender: FDA-Public Use
  Company Number: SE-GLAXOSMITHKLINE-B0387634A

PATIENT
  Age: 79 Year
  Sex: Male

DRUGS (4)
  1. ZINACEF [Suspect]
     Indication: DRUG USE FOR UNKNOWN INDICATION
     Dosage: 1.5G THREE TIMES PER DAY
     Route: 065
     Dates: start: 20041227, end: 20050102
  2. TAZOCIN [Suspect]
     Indication: DRUG USE FOR UNKNOWN INDICATION
     Dosage: 4G THREE TIMES PER DAY
     Route: 065
  3. GALANTAMINE HYDROBROMIDE [Suspect]
     Indication: DRUG USE FOR UNKNOWN INDICATION
     Dosage: 8MG PER DAY
     Route: 048
     Dates: start: 20041216
  4. WARFARIN SODIUM [Concomitant]
     Dosage: 2.5MG PER DAY

REACTIONS (8)
  - ANURIA [None]
  - BLOOD CALCIUM DECREASED [None]
  - BLOOD CREATININE INCREASED [None]
  - DEPRESSED LEVEL OF CONSCIOUSNESS [None]
  - HYPERKALAEMIA [None]
  - ILEUS PARALYTIC [None]
  - OLIGURIA [None]
  - PYRUVATE KINASE INCREASED [None]
